FAERS Safety Report 7123496-3 (Version None)
Quarter: 2010Q4

REPORT INFORMATION
  Report Type: 
  Country: None (occurrence: None)
  Receive Date: 20101125
  Receipt Date: 20101118
  Transmission Date: 20110411
  Serious: No
  Sender: FDA-Public Use
  Company Number: US-BIOGENIDEC-2010BI041132

PATIENT
  Age: 37 Year
  Sex: Female

DRUGS (2)
  1. AVONEX [Suspect]
     Indication: MULTIPLE SCLEROSIS
     Route: 030
     Dates: start: 19981020, end: 20000301
  2. AVONEX [Suspect]
     Route: 030
     Dates: start: 20101117

REACTIONS (2)
  - DYSURIA [None]
  - INFLUENZA LIKE ILLNESS [None]
